FAERS Safety Report 9390739 (Version 1)
Quarter: 2013Q3

REPORT INFORMATION
  Report Type: Spontaneous
  Country: FR (occurrence: FR)
  Receive Date: 20130709
  Receipt Date: 20130709
  Transmission Date: 20140515
  Serious: Yes (Hospitalization, Disabling, Other)
  Sender: FDA-Public Use
  Company Number: FR-009507513-0705FRA00016

PATIENT
  Sex: Female

DRUGS (11)
  1. FOSAVANCE [Suspect]
     Indication: OSTEOPOROSIS
     Dosage: 70 MG/2800
     Route: 048
     Dates: start: 200608, end: 200703
  2. FOSAMAX [Suspect]
     Indication: OSTEOPOROSIS
     Dosage: 70 MG, QW
     Route: 048
     Dates: start: 200412, end: 200608
  3. HYZAAR 50 MG/12,5 MG, COMPRIM? PELLICUL? [Concomitant]
     Indication: HYPERTENSION
     Dosage: 50-12.5
     Route: 048
  4. DICLOFENAC [Concomitant]
     Indication: ARTHRALGIA
     Route: 048
  5. CALCIUM (UNSPECIFIED) [Concomitant]
     Indication: OSTEOPOROSIS
     Dosage: UNK
     Route: 048
     Dates: start: 20041210, end: 200608
  6. VITAMIN D (UNSPECIFIED) [Concomitant]
     Indication: OSTEOPOROSIS
     Dosage: UNK
     Route: 048
     Dates: start: 20041210, end: 200608
  7. MK-9384 [Concomitant]
     Indication: ARTHRALGIA
     Route: 048
  8. SECTRAL 100 [Concomitant]
     Indication: HYPERTENSION
     Dosage: 400 MG, QD
     Route: 048
  9. VALIUM [Concomitant]
     Dosage: 15 MG, QD
     Route: 048
  10. MEPRONIZINE [Concomitant]
     Dosage: UNK
     Route: 048
  11. PRILOSEC [Concomitant]
     Dosage: 20 MG, QD
     Route: 048
     Dates: start: 20060802

REACTIONS (5)
  - Foot deformity [Not Recovered/Not Resolved]
  - Osteonecrosis of jaw [Recovered/Resolved]
  - Arthralgia [Not Recovered/Not Resolved]
  - Arthralgia [Not Recovered/Not Resolved]
  - Musculoskeletal pain [Not Recovered/Not Resolved]
